FAERS Safety Report 8231740-4 (Version None)
Quarter: 2012Q1

REPORT INFORMATION
  Report Type: 
  Country: None (occurrence: None)
  Receive Date: 20120323
  Receipt Date: 20120313
  Transmission Date: 20120608
  Serious: Yes (Hospitalization)
  Sender: FDA-Public Use
  Company Number: CA-BRISTOL-MYERS SQUIBB COMPANY-16324287

PATIENT
  Age: 59 Year
  Sex: Male

DRUGS (13)
  1. GLICLAZIDE [Concomitant]
  2. TRAVATAN [Concomitant]
     Indication: GLAUCOMA
     Dosage: EYE DROPS
  3. COD LIVER OIL [Concomitant]
  4. PANTOPRAZOLE SODIUM [Concomitant]
  5. METHOTREXATE SODIUM [Concomitant]
     Dosage: METHOTREXATE INJECTION
  6. ALLOPURINOL [Concomitant]
  7. CADUET [Concomitant]
  8. ORENCIA [Suspect]
     Indication: RHEUMATOID ARTHRITIS
     Dosage: NO OF INF:3 LAST INF ON 09DEC2011,24JAN12,08FEB12 Q2
     Route: 042
     Dates: start: 20111209
  9. METOPROLOL SUCCINATE [Concomitant]
  10. ASCORBIC ACID [Concomitant]
  11. FUROSEMIDE [Concomitant]
  12. WARFARIN SODIUM [Concomitant]
  13. TIMOLOL MALEATE [Concomitant]
     Indication: GLAUCOMA
     Dosage: EYE DROP

REACTIONS (20)
  - MUSCLE SPASMS [None]
  - WEIGHT DECREASED [None]
  - ASTHENIA [None]
  - NASAL CONGESTION [None]
  - EPISTAXIS [None]
  - HAEMOGLOBIN DECREASED [None]
  - POOR VENOUS ACCESS [None]
  - COUGH [None]
  - DECREASED APPETITE [None]
  - PNEUMONIA [None]
  - DIARRHOEA [None]
  - HEADACHE [None]
  - OROPHARYNGEAL PAIN [None]
  - DYSGEUSIA [None]
  - PYREXIA [None]
  - FATIGUE [None]
  - VIRAL INFECTION [None]
  - THROAT IRRITATION [None]
  - SOMNOLENCE [None]
  - DYSPNOEA [None]
